FAERS Safety Report 8818390 (Version 2)
Quarter: 2012Q4

REPORT INFORMATION
  Report Type: 
  Country: TW (occurrence: TW)
  Receive Date: 20121001
  Receipt Date: 20121205
  Transmission Date: 20130627
  Serious: Yes (Hospitalization)
  Sender: FDA-Public Use
  Company Number: TW-ABBOTT-12P-153-0986411-00

PATIENT
  Age: 74 Year
  Sex: Female
  Weight: 75 kg

DRUGS (40)
  1. HUMIRA [Suspect]
     Indication: RHEUMATOID ARTHRITIS
     Route: 058
     Dates: start: 20100511
  2. KNOWFUL [Concomitant]
     Indication: PRODUCT USED FOR UNKNOWN INDICATION
     Dates: start: 20120807
  3. KNOWFUL [Concomitant]
     Dates: start: 20120905
  4. KNOWFUL [Concomitant]
     Dates: start: 20120915, end: 20120918
  5. KNOWFUL [Concomitant]
     Dates: start: 20120927
  6. BOKEY [Concomitant]
     Indication: PRODUCT USED FOR UNKNOWN INDICATION
     Dates: start: 20120807
  7. BOKEY [Concomitant]
     Dates: start: 20120905
  8. BOKEY [Concomitant]
     Dates: start: 20120915, end: 20120918
  9. BOKEY [Concomitant]
     Dates: start: 20120927
  10. CEREBREX [Concomitant]
     Indication: PRODUCT USED FOR UNKNOWN INDICATION
     Dates: start: 20120810
  11. CEREBREX [Concomitant]
     Dates: start: 20120907
  12. CEREBREX [Concomitant]
     Dates: start: 20120915, end: 20120918
  13. CEREBREX [Concomitant]
     Dates: start: 20121001
  14. GENIQUIN [Concomitant]
     Indication: PRODUCT USED FOR UNKNOWN INDICATION
     Dates: start: 20120810
  15. GENIQUIN [Concomitant]
     Dates: start: 20120907
  16. GENIQUIN [Concomitant]
     Dates: start: 20120915, end: 20120918
  17. GENIQUIN [Concomitant]
     Dates: start: 20121001
  18. PREDNISOLONE [Concomitant]
     Indication: PRODUCT USED FOR UNKNOWN INDICATION
     Dates: start: 20120810
  19. PREDNISOLONE [Concomitant]
     Dates: start: 20120907
  20. PREDNISOLONE [Concomitant]
     Dates: start: 20120915, end: 20120918
  21. PREDNISOLONE [Concomitant]
     Dates: start: 20121001
  22. FOLIC ACID [Concomitant]
     Indication: PRODUCT USED FOR UNKNOWN INDICATION
     Dates: start: 20120810
  23. FOLIC ACID [Concomitant]
     Dates: start: 20120907
  24. FOLIC ACID [Concomitant]
     Dates: start: 20120915, end: 20120918
  25. FOLIC ACID [Concomitant]
     Dates: start: 20121001
  26. METHOTREXATE [Concomitant]
     Indication: PRODUCT USED FOR UNKNOWN INDICATION
     Dates: start: 20120810
  27. METHOTREXATE [Concomitant]
     Dates: start: 20120907
  28. METHOTREXATE [Concomitant]
     Dates: start: 20120915, end: 20120918
  29. METHOTREXATE [Concomitant]
     Dates: start: 20121001
  30. SALAZINE [Concomitant]
     Indication: PRODUCT USED FOR UNKNOWN INDICATION
     Dates: start: 20120810
  31. SALAZINE [Concomitant]
     Dates: start: 20120907
  32. SALAZINE [Concomitant]
     Dates: start: 20120915, end: 20120918
  33. SALAZINE [Concomitant]
     Dates: start: 20121001
  34. SUWELL [Concomitant]
     Indication: PRODUCT USED FOR UNKNOWN INDICATION
     Dates: start: 20120810
  35. SUWELL [Concomitant]
     Dates: start: 20120907
  36. SUWELL [Concomitant]
     Dates: start: 20120915, end: 20120918
  37. SUWELL [Concomitant]
     Dates: start: 20121001
  38. AVELOX [Concomitant]
     Indication: PRODUCT USED FOR UNKNOWN INDICATION
     Route: 050
     Dates: start: 20120915, end: 20120918
  39. CEFUROXIME [Concomitant]
     Indication: PRODUCT USED FOR UNKNOWN INDICATION
     Route: 050
     Dates: start: 20120915, end: 20120918
  40. SINFLO [Concomitant]
     Indication: PRODUCT USED FOR UNKNOWN INDICATION
     Dates: start: 20120921

REACTIONS (2)
  - Pyrexia [Recovering/Resolving]
  - Urinary tract infection [Recovering/Resolving]
